FAERS Safety Report 6831588-9 (Version None)
Quarter: 2010Q3

REPORT INFORMATION
  Report Type: 
  Country: None (occurrence: None)
  Receive Date: 20100712
  Receipt Date: 20100629
  Transmission Date: 20110219
  Serious: Yes (Other)
  Sender: FDA-Public Use
  Company Number: PHHY2010DE43296

PATIENT

DRUGS (4)
  1. METOPROLOL [Suspect]
     Indication: HYPERTENSION
     Dosage: 50 MG, QD
     Route: 048
  2. ENALAPRIL MALEATE [Suspect]
     Indication: HYPERTENSION
     Dosage: 10 MG, QD
     Route: 048
  3. ENALAPRIL MALEATE [Suspect]
     Dosage: 10/25 (UNKNOWN UNITS), ONE DOSAGE FORM DAILY
     Route: 048
  4. AROMASIN [Suspect]
     Indication: BREAST CANCER

REACTIONS (2)
  - ARTHRALGIA [None]
  - JOINT STIFFNESS [None]
